FAERS Safety Report 13467289 (Version 2)
Quarter: 2017Q2

REPORT INFORMATION
  Report Type: Spontaneous
  Country: US (occurrence: US)
  Receive Date: 20170421
  Receipt Date: 20170628
  Transmission Date: 20170830
  Serious: No
  Sender: FDA-Public Use
  Company Number: PHEH2017US011742

PATIENT
  Sex: Female

DRUGS (2)
  1. ONDANSETRONE DR. REDDY^S [Suspect]
     Active Substance: ONDANSETRON HYDROCHLORIDE
     Indication: VOMITING IN PREGNANCY
     Dosage: 4 MG, UNK
     Route: 065
     Dates: start: 20140904, end: 20141003
  2. ZOFRAN [Suspect]
     Active Substance: ONDANSETRON HYDROCHLORIDE
     Indication: VOMITING IN PREGNANCY
     Route: 048

REACTIONS (4)
  - Maternal exposure during pregnancy [Unknown]
  - Emotional distress [Unknown]
  - Product use in unapproved indication [Unknown]
  - Injury [Unknown]
